FAERS Safety Report 10272512 (Version 1)
Quarter: 2014Q2

REPORT INFORMATION
  Report Type: Spontaneous
  Country: US (occurrence: None)
  Receive Date: 20140627
  Receipt Date: 20140627
  Transmission Date: 20141212
  Serious: Yes (Hospitalization)
  Sender: FDA-Public Use
  Company Number: None

PATIENT
  Age: 38 Year
  Sex: Female
  Weight: 111.6 kg

DRUGS (13)
  1. ALFA 2 INTERFERON 2B (INTRON-A) [Suspect]
     Dosage: 860 MU
  2. ACETAMINOPHEN [Concomitant]
  3. ALOXI [Concomitant]
  4. ASPIRIN [Concomitant]
  5. ATIVAN [Concomitant]
  6. CIPRO [Concomitant]
  7. COMPAZINE [Concomitant]
  8. DIPHENHYDRAMINE [Concomitant]
  9. LANTUS [Concomitant]
  10. LISINOPRIL [Concomitant]
  11. MULTIVITAMIN [Concomitant]
  12. NOVOLOG [Concomitant]
  13. ROCEPHIN [Concomitant]

REACTIONS (4)
  - Dyspnoea [None]
  - Pleural effusion [None]
  - Urinary tract infection [None]
  - Aspiration pleural cavity [None]
